FAERS Safety Report 18917217 (Version 1)
Quarter: 2021Q1

REPORT INFORMATION
  Report Type: Spontaneous
  Country: DE (occurrence: DE)
  Receive Date: 20210219
  Receipt Date: 20210219
  Transmission Date: 20210420
  Serious: Yes (Death)
  Sender: FDA-Public Use
  Company Number: DE-BAYER-2021-072656

PATIENT
  Age: 58 Year
  Sex: Male

DRUGS (1)
  1. CIPROFLOXACIN. [Suspect]
     Active Substance: CIPROFLOXACIN
     Indication: BACTERIAL TEST POSITIVE
     Dates: start: 20201229, end: 20201230

REACTIONS (2)
  - Gastric haemorrhage [Fatal]
  - Epilepsy [Fatal]

NARRATIVE: CASE EVENT DATE: 20201230
